FAERS Safety Report 5205039-4 (Version None)
Quarter: 2007Q1

REPORT INFORMATION
  Report Type: 
  Country: None (occurrence: None)
  Receive Date: 20070110
  Receipt Date: 20061024
  Transmission Date: 20070707
  Serious: Yes (Disabling)
  Sender: FDA-Public Use
  Company Number: US-BRISTOL-MYERS SQUIBB COMPANY-13536578

PATIENT
  Age: 45 Year
  Sex: Male

DRUGS (3)
  1. ABILIFY [Suspect]
     Indication: BIPOLAR DISORDER
     Route: 048
     Dates: start: 20061009, end: 20061009
  2. ARTANE [Concomitant]
  3. ZYPREXA [Concomitant]

REACTIONS (2)
  - DYSTONIA [None]
  - OROPHARYNGEAL SPASM [None]
